FAERS Safety Report 8859964 (Version 2)
Quarter: 2013Q1

REPORT INFORMATION
  Report Type: Spontaneous
  Country: US (occurrence: US)
  Receive Date: 20121025
  Receipt Date: 20130103
  Transmission Date: 20140127
  Serious: Yes (Congenital Anomaly, Other)
  Sender: FDA-Public Use
  Company Number: US-PFIZER INC-2012263610

PATIENT
  Age: 3 Year
  Sex: Male
  Weight: 3.6 kg

DRUGS (2)
  1. ZOLOFT [Suspect]
     Indication: ANXIETY
     Dosage: 50 MG/100 MG
     Route: 064
     Dates: start: 2002, end: 20040728
  2. PRENATAL VITAMINS [Concomitant]
     Dosage: UNK
     Route: 064

REACTIONS (5)
  - Maternal exposure timing unspecified [Unknown]
  - Craniosynostosis [Unknown]
  - Developmental delay [Unknown]
  - Torticollis [Unknown]
  - Headache [Unknown]
